FAERS Safety Report 8335111-1 (Version None)
Quarter: 2012Q2

REPORT INFORMATION
  Report Type: 
  Country: None (occurrence: None)
  Receive Date: 20120503
  Receipt Date: 20120412
  Transmission Date: 20120825
  Serious: Yes (Other)
  Sender: FDA-Public Use
  Company Number: CHNY2012BR000525

PATIENT
  Age: 54 Year
  Sex: Female

DRUGS (5)
  1. ACETAMINOPHEN, ASPIRIN AND CAFFEINE [Suspect]
     Dosage: 2 DF, BID
     Route: 048
  2. QUEMICETINA [Concomitant]
     Dosage: UNK, UNK
  3. ACETAMINOPHEN, ASPIRIN AND CAFFEINE [Suspect]
     Dosage: 2 DF, QD, SINCE 25 YEARS
     Route: 048
  4. ACETAMINOPHEN, ASPIRIN AND CAFFEINE [Suspect]
     Indication: JOINT SWELLING
     Dosage: 1 DF, Q8H DILUTED IN WATER, SINCE 32 YEARS AGO
     Route: 048
  5. CHLORAMPHENICOL [Concomitant]
     Indication: PAIN IN EXTREMITY
     Dosage: 250 MG, UNK

REACTIONS (12)
  - CARDIOVASCULAR DISORDER [None]
  - VASODILATATION [None]
  - CHROMATURIA [None]
  - OFF LABEL USE [None]
  - OEDEMA PERIPHERAL [None]
  - EFFUSION [None]
  - FEELING ABNORMAL [None]
  - PARAESTHESIA [None]
  - HAEMORRHAGE [None]
  - VASCULAR RUPTURE [None]
  - PAIN [None]
  - WRONG TECHNIQUE IN DRUG USAGE PROCESS [None]
